FAERS Safety Report 14691722 (Version 1)
Quarter: 2018Q1

REPORT INFORMATION
  Report Type: Spontaneous
  Country: NL (occurrence: NL)
  Receive Date: 20180329
  Receipt Date: 20180329
  Transmission Date: 20180509
  Serious: Yes (Hospitalization)
  Sender: FDA-Public Use
  Company Number: NL-TEVA-2018-NL-876360

PATIENT
  Age: 44 Year
  Sex: Female
  Weight: 90 kg

DRUGS (4)
  1. CETOMACROGOLCREME FNA [Concomitant]
     Dosage: 2DD
  2. DEPO PROV 150MG/ML [Concomitant]
     Dosage: 1X/3MND
  3. CIPROFLOXACIN. [Suspect]
     Active Substance: CIPROFLOXACIN
     Indication: ESCHERICHIA URINARY TRACT INFECTION
     Dosage: 500MG 2DD1
  4. VITAMINE D3 5600IE [Concomitant]
     Dosage: 1X/WK 1

REACTIONS (4)
  - Rash erythematous [Recovering/Resolving]
  - Vomiting [Recovering/Resolving]
  - Pruritus [Recovering/Resolving]
  - Nausea [Recovering/Resolving]
